FAERS Safety Report 8580580 (Version 3)
Quarter: 2013Q2

REPORT INFORMATION
  Report Type: Spontaneous
  Country: IT (occurrence: IT)
  Receive Date: 20120525
  Receipt Date: 20130607
  Transmission Date: 20140414
  Serious: Yes (Hospitalization)
  Sender: FDA-Public Use
  Company Number: IT-UCBSA-057631

PATIENT
  Age: 87 Year
  Sex: Female

DRUGS (6)
  1. ISOSORBIDE MONONITRATE [Suspect]
     Indication: ANGINA PECTORIS
     Dosage: DAILY DOSE:20 MG
     Route: 048
     Dates: start: 20120402, end: 20120402
  2. CORDARONE [Suspect]
     Indication: VENTRICULAR ARRHYTHMIA
     Dosage: 200 MG,20 TABLETS
     Route: 048
     Dates: start: 20120402, end: 20120402
  3. SIMVASTATIN [Concomitant]
     Indication: CARDIOVASCULAR EVENT PROPHYLAXIS
     Dosage: DAILY DOSE:20 MG
     Route: 048
  4. EUTIROX [Concomitant]
     Indication: HYPOTHYROIDISM
     Dosage: 100 ?G, 50 TABLETS
     Route: 048
  5. CARDIRENE [Concomitant]
     Indication: CARDIOVASCULAR EVENT PROPHYLAXIS
     Dosage: 160 MG 30 SACHETS
     Route: 048
  6. FELDENE FAST [Concomitant]
     Indication: PAIN
     Dosage: 200 MG, 20 SUBLINGUAL TABLETS
     Route: 060

REACTIONS (1)
  - Syncope [Recovered/Resolved]
